FAERS Safety Report 21584135 (Version 2)
Quarter: 2023Q2

REPORT INFORMATION
  Report Type: Spontaneous
  Country: DE (occurrence: DE)
  Receive Date: 20221111
  Receipt Date: 20230518
  Transmission Date: 20230722
  Serious: Yes (Death, Life-Threatening, Other)
  Sender: FDA-Public Use
  Company Number: DE-TORRENT-00023722

PATIENT
  Age: 30 Year
  Weight: 70 kg

DRUGS (7)
  1. MOXIFLOXACIN [Interacting]
     Active Substance: MOXIFLOXACIN
     Indication: Pneumonia cytomegaloviral
     Route: 065
  2. CASPOFUNGIN [Suspect]
     Active Substance: CASPOFUNGIN
     Indication: Product used for unknown indication
     Dosage: 1-TIME 50MG
     Route: 065
  3. SULFAMETHOXAZOLE\TRIMETHOPRIM [Interacting]
     Active Substance: SULFAMETHOXAZOLE\TRIMETHOPRIM
     Indication: Pneumocystis jirovecii infection
     Route: 065
  4. HYDROCORTISONE [Suspect]
     Active Substance: HYDROCORTISONE
     Indication: Sepsis
     Dosage: 200 MG A DAY
     Route: 065
  5. GANCICLOVIR [Interacting]
     Active Substance: GANCICLOVIR
     Indication: Pneumocystis jirovecii infection
     Dosage: UNKNOWN
     Route: 065
  6. GENVOYA [Interacting]
     Active Substance: COBICISTAT\ELVITEGRAVIR\EMTRICITABINE\TENOFOVIR ALAFENAMIDE FUMARATE
     Indication: Pneumocystis jirovecii infection
     Dosage: UNKNOWN
     Route: 065
  7. MEROPENEM [Interacting]
     Active Substance: MEROPENEM
     Indication: Pneumonia cytomegaloviral
     Route: 065

REACTIONS (2)
  - Multiple organ dysfunction syndrome [Fatal]
  - Drug interaction [Unknown]
